FAERS Safety Report 25785873 (Version 1)
Quarter: 2025Q3

REPORT INFORMATION
  Report Type: Spontaneous
  Country: US (occurrence: US)
  Receive Date: 20250910
  Receipt Date: 20250910
  Transmission Date: 20251021
  Serious: No
  Sender: AMGEN
  Company Number: EU-AMGEN-IRLSP2025095698

PATIENT
  Sex: Female

DRUGS (1)
  1. AMJEVITA [Suspect]
     Active Substance: ADALIMUMAB-ATTO
     Indication: Product used for unknown indication
     Route: 058

REACTIONS (5)
  - Product substitution issue [Unknown]
  - Dizziness [Unknown]
  - Injection site swelling [Unknown]
  - Dyspnoea [Unknown]
  - Chest pain [Unknown]
